FAERS Safety Report 7769361-X (Version None)
Quarter: 2011Q3

REPORT INFORMATION
  Report Type: 
  Country: None (occurrence: None)
  Receive Date: 20110922
  Receipt Date: 20110318
  Transmission Date: 20111222
  Serious: No
  Sender: FDA-Public Use
  Company Number: US-ASTRAZENECA-2009UW11590

PATIENT
  Age: 19767 Day
  Sex: Female

DRUGS (4)
  1. WELLBUTRIN [Concomitant]
  2. AMBIEN [Concomitant]
  3. SEROQUEL [Suspect]
     Indication: DEPRESSION
     Dosage: 200 MG-800 MG
     Route: 048
     Dates: start: 20041214, end: 20090108
  4. LEXAPRO [Concomitant]

REACTIONS (2)
  - OSTEOPOROSIS [None]
  - TYPE 2 DIABETES MELLITUS [None]
